FAERS Safety Report 10939687 (Version 3)
Quarter: 2015Q3

REPORT INFORMATION
  Report Type: Spontaneous
  Country: US (occurrence: US)
  Receive Date: 20150322
  Receipt Date: 20150807
  Transmission Date: 20151125
  Serious: No
  Sender: FDA-Public Use
  Company Number: US-JNJFOC-20141115885

PATIENT
  Age: 43 Year
  Sex: Female

DRUGS (11)
  1. LEVOTHYROXINE. [Concomitant]
     Active Substance: LEVOTHYROXINE
     Indication: HYPOTHYROIDISM
  2. RISPERDAL [Suspect]
     Active Substance: RISPERIDONE
     Indication: MOOD ALTERED
     Route: 048
     Dates: start: 20050101
  3. INSULIN [Concomitant]
     Active Substance: INSULIN NOS
     Indication: DIABETES MELLITUS
  4. RISPERDAL [Suspect]
     Active Substance: RISPERIDONE
     Indication: MOOD ALTERED
     Route: 048
     Dates: start: 201411
  5. TRAZODONE [Concomitant]
     Active Substance: TRAZODONE HYDROCHLORIDE
     Indication: ANXIETY
  6. LOVASTATIN. [Concomitant]
     Active Substance: LOVASTATIN
     Indication: BLOOD CHOLESTEROL INCREASED
  7. EFFEXOR [Concomitant]
     Active Substance: VENLAFAXINE HYDROCHLORIDE
     Indication: DEPRESSION
  8. RISPERDAL [Suspect]
     Active Substance: RISPERIDONE
     Indication: SLEEP DISORDER
     Route: 048
     Dates: start: 201411
  9. RISPERDAL [Suspect]
     Active Substance: RISPERIDONE
     Indication: SLEEP DISORDER
     Route: 048
     Dates: start: 20050101
  10. MAGNESIUM [Concomitant]
     Active Substance: MAGNESIUM
     Indication: BLOOD MAGNESIUM DECREASED
  11. METFORMIN [Concomitant]
     Active Substance: METFORMIN HYDROCHLORIDE
     Indication: DIABETES MELLITUS

REACTIONS (21)
  - Bedridden [Recovered/Resolved]
  - Weight decreased [Unknown]
  - Nightmare [Recovered/Resolved]
  - Discomfort [Recovered/Resolved]
  - Agoraphobia [Recovered/Resolved]
  - Headache [Recovered/Resolved]
  - Panic attack [Recovered/Resolved]
  - Therapy cessation [Recovered/Resolved]
  - Anxiety [Recovered/Resolved]
  - Insomnia [Recovered/Resolved]
  - Impaired driving ability [Recovered/Resolved]
  - Mental disorder [Recovered/Resolved]
  - Poor personal hygiene [Recovered/Resolved]
  - Agoraphobia [Unknown]
  - Hallucination [Recovered/Resolved]
  - General physical health deterioration [Recovered/Resolved]
  - Drug withdrawal syndrome [Recovered/Resolved]
  - Decreased appetite [Recovered/Resolved]
  - Blood glucose increased [Unknown]
  - Off label use [Unknown]
  - Reading disorder [Unknown]

NARRATIVE: CASE EVENT DATE: 20050101
